FAERS Safety Report 4421166-3 (Version None)
Quarter: 2004Q3

REPORT INFORMATION
  Report Type: 
  Country: None (occurrence: None)
  Receive Date: 20040804
  Receipt Date: 20040722
  Transmission Date: 20050211
  Serious: Yes (Other)
  Sender: FDA-Public Use
  Company Number: LB-JNJFOC-20040706382

PATIENT
  Age: 43 Year
  Sex: Male

DRUGS (1)
  1. INFLIXIMAB (INFLIXIMAB, RECOMBINANT) LYOPHILIZED POWDER [Suspect]
     Indication: PYODERMA GANGRENOSUM
     Dosage: INTRAVENOUS
     Route: 042

REACTIONS (5)
  - BIOPSY LUNG ABNORMAL [None]
  - COUGH [None]
  - PULMONARY GRANULOMA [None]
  - PYREXIA [None]
  - TUBERCULOSIS [None]
